FAERS Safety Report 7829273-X (Version None)
Quarter: 2011Q4

REPORT INFORMATION
  Report Type: 
  Country: None (occurrence: None)
  Receive Date: 20111020
  Receipt Date: 20111007
  Transmission Date: 20120403
  Serious: Yes (Hospitalization, Other)
  Sender: FDA-Public Use
  Company Number: US-ELI_LILLY_AND_COMPANY-US201109000499

PATIENT
  Sex: Female
  Weight: 43 kg

DRUGS (4)
  1. FORTEO [Suspect]
     Indication: OSTEOPOROSIS
     Dosage: 20 UG, QD
     Route: 065
     Dates: start: 20110601, end: 20111001
  2. ASPIRIN [Concomitant]
  3. VITAMIN TAB [Concomitant]
  4. ANTIHYPERTENSIVES [Concomitant]
     Indication: HYPERTENSION

REACTIONS (3)
  - BREAST CANCER STAGE II [None]
  - FATIGUE [None]
  - WEIGHT DECREASED [None]
